FAERS Safety Report 6243280-2 (Version None)
Quarter: 2009Q2

REPORT INFORMATION
  Report Type: 
  Country: None (occurrence: None)
  Receive Date: 20090624
  Receipt Date: 20090612
  Transmission Date: 20091009
  Serious: Yes (Hospitalization)
  Sender: FDA-Public Use
  Company Number: PHEH2009US02755

PATIENT
  Sex: Female
  Weight: 79 kg

DRUGS (7)
  1. RECLAST [Suspect]
     Indication: OSTEOPOROSIS
     Dosage: 5 MG, ONCE/SINGLE
     Dates: start: 20090306, end: 20090306
  2. CORTICOSTEROIDS [Concomitant]
     Indication: ASTHMA
     Dosage: UNK, UNK
  3. SYNTHROID [Concomitant]
     Indication: HYPOTHYROIDISM
     Dosage: 125 UG, QD
     Route: 048
  4. PREDNISONE [Concomitant]
     Indication: ASTHMA
     Dosage: 6 MG, QD
     Route: 048
  5. ADVAIR HFA [Concomitant]
     Indication: ASTHMA
     Dosage: 1 PUFF 250/50, BID
  6. ENALAPRIL [Concomitant]
     Indication: HYPERTENSION
     Dosage: 20 MG, QD
     Route: 048
  7. NEXIUM [Concomitant]
     Indication: GASTROOESOPHAGEAL REFLUX DISEASE
     Dosage: 40 MG, QD
     Route: 048

REACTIONS (6)
  - DEHYDRATION [None]
  - LETHARGY [None]
  - NAUSEA [None]
  - RENAL FAILURE ACUTE [None]
  - RENAL TUBULAR NECROSIS [None]
  - VOMITING [None]
